FAERS Safety Report 6343471-6 (Version None)
Quarter: 2009Q3

REPORT INFORMATION
  Report Type: 
  Country: None (occurrence: None)
  Receive Date: 20090908
  Receipt Date: 20090827
  Transmission Date: 20100115
  Serious: Yes (Hospitalization)
  Sender: FDA-Public Use
  Company Number: JP-PFIZER INC-2009170002

PATIENT
  Age: 73 Year

DRUGS (8)
  1. LINEZOLID [Suspect]
     Indication: PNEUMONIA
     Dosage: 600 MG, 2X/DAY
     Route: 042
     Dates: start: 20080625, end: 20080707
  2. CIPROXAN [Suspect]
     Dosage: UNK MG, 1X/DAY
     Route: 042
     Dates: start: 20080625, end: 20080707
  3. TARGOCID [Concomitant]
     Route: 042
  4. BIAPENEM [Concomitant]
     Route: 042
  5. LASIX [Concomitant]
     Dosage: UNK
     Route: 042
  6. DIGOSIN [Concomitant]
     Dosage: UNK
     Route: 042
  7. CATABON [Concomitant]
     Dosage: UNK
     Route: 042
     Dates: start: 20080625, end: 20080707
  8. ALL OTHER THERAPEUTIC PRODUCTS [Concomitant]
     Dosage: UNK
     Route: 042
     Dates: start: 20080701, end: 20080703

REACTIONS (5)
  - DISSEMINATED INTRAVASCULAR COAGULATION [None]
  - HAEMATOCRIT DECREASED [None]
  - HAEMOGLOBIN DECREASED [None]
  - PLATELET COUNT DECREASED [None]
  - RED BLOOD CELL COUNT DECREASED [None]
